FAERS Safety Report 14245173 (Version 1)
Quarter: 2017Q4

REPORT INFORMATION
  Report Type: Spontaneous
  Country: US (occurrence: US)
  Receive Date: 20171202
  Receipt Date: 20171202
  Transmission Date: 20180321
  Serious: Yes (Death, Life-Threatening, Hospitalization, Other)
  Sender: FDA-Public Use
  Company Number: US-ACCORD-061554

PATIENT
  Age: 25 Week
  Sex: Female
  Weight: 1.87 kg

DRUGS (13)
  1. FUROSEMIDE. [Suspect]
     Active Substance: FUROSEMIDE
     Indication: PRODUCT USED FOR UNKNOWN INDICATION
  2. POTASSIUM [Concomitant]
     Active Substance: POTASSIUM
  3. IPRATROPIUM [Concomitant]
     Active Substance: IPRATROPIUM
     Route: 055
  4. MIDAZOLAM [Concomitant]
     Active Substance: MIDAZOLAM HYDROCHLORIDE
  5. DEXAMETHASONE. [Suspect]
     Active Substance: DEXAMETHASONE
     Indication: PRODUCT USED FOR UNKNOWN INDICATION
  6. LANSOPRAZOLE. [Concomitant]
     Active Substance: LANSOPRAZOLE
  7. SODIUM CHLORIDE. [Concomitant]
     Active Substance: SODIUM CHLORIDE
  8. HYDRODIURIL [Suspect]
     Active Substance: HYDROCHLOROTHIAZIDE
     Indication: PRODUCT USED FOR UNKNOWN INDICATION
  9. MORPHINE [Concomitant]
     Active Substance: MORPHINE
     Dosage: INTERMITTENT
  10. LORAZEPAM. [Concomitant]
     Active Substance: LORAZEPAM
     Dosage: INTERMITTENT
  11. SPIRONOLACTONE. [Suspect]
     Active Substance: SPIRONOLACTONE
     Indication: PRODUCT USED FOR UNKNOWN INDICATION
  12. FLUTICASONE. [Suspect]
     Active Substance: FLUTICASONE
     Indication: PRODUCT USED FOR UNKNOWN INDICATION
  13. METOCLOPRAMIDE. [Concomitant]
     Active Substance: METOCLOPRAMIDE

REACTIONS (14)
  - Nephrolithiasis [Unknown]
  - Hypochloraemia [Unknown]
  - Pulmonary hypertension [Fatal]
  - Drug dependence [Unknown]
  - Pathological fracture [Unknown]
  - Hypertension [Fatal]
  - Osteopenia [Unknown]
  - Cor pulmonale [Unknown]
  - Hypocalcaemia [Unknown]
  - Abnormal behaviour [Unknown]
  - Nephrocalcinosis [Unknown]
  - Hypokalaemia [Unknown]
  - Hyponatraemia [Unknown]
  - Hypertrophic cardiomyopathy [Unknown]
